FAERS Safety Report 5325772-3 (Version None)
Quarter: 2007Q2

REPORT INFORMATION
  Report Type: 
  Country: None (occurrence: None)
  Receive Date: 20070510
  Receipt Date: 20070426
  Transmission Date: 20071010
  Serious: Yes (Hospitalization)
  Sender: FDA-Public Use
  Company Number: 02100-EUR-07-0065

PATIENT
  Age: 60 Year
  Sex: Male

DRUGS (4)
  1. CILOSTAZOL [Suspect]
     Indication: PERIPHERAL ARTERIAL OCCLUSIVE DISEASE
     Dosage: 100 MG ORAL
     Route: 048
     Dates: start: 20070418, end: 20070424
  2. CILOSTAZOL [Suspect]
     Indication: PERIPHERAL ARTERIAL OCCLUSIVE DISEASE
     Dosage: 100 MG ORAL
     Route: 048
     Dates: start: 20070502
  3. ACETYLSALICYLIC ACID SRT [Concomitant]
  4. AMOXICILLIN [Concomitant]

REACTIONS (4)
  - ADAMS-STOKES SYNDROME [None]
  - ATRIOVENTRICULAR BLOCK COMPLETE [None]
  - CONVULSION [None]
  - SYNCOPE [None]
